FAERS Safety Report 17114685 (Version 5)
Quarter: 2020Q1

REPORT INFORMATION
  Report Type: Report from Study
  Country: None (occurrence: JP)
  Receive Date: 20191205
  Receipt Date: 20200320
  Transmission Date: 20200409
  Serious: Yes (Other)
  Sender: FDA-Public Use
  Company Number: JP-ABBVIE-19K-087-3000069-00

PATIENT
  Age: 76 Year
  Sex: Female

DRUGS (1)
  1. DUODOPA [Suspect]
     Active Substance: CARBIDOPA\LEVODOPA
     Indication: PARKINSON^S DISEASE
     Route: 050
     Dates: start: 20190912

REACTIONS (11)
  - Gastrointestinal haemorrhage [Unknown]
  - Fall [Unknown]
  - Device dislocation [Unknown]
  - Malaise [Unknown]
  - Mobility decreased [Unknown]
  - Glare [Unknown]
  - Stoma site discharge [Unknown]
  - Stoma site discharge [Recovered/Resolved]
  - Injury [Unknown]
  - Fatigue [Unknown]
  - Stoma site haemorrhage [Unknown]

NARRATIVE: CASE EVENT DATE: 2019
